FAERS Safety Report 6044541-2 (Version None)
Quarter: 2009Q1

REPORT INFORMATION
  Report Type: 
  Country: None (occurrence: None)
  Receive Date: 20090120
  Receipt Date: 20081201
  Transmission Date: 20090719
  Serious: Yes (Hospitalization)
  Sender: FDA-Public Use
  Company Number: GB-SANOFI-SYNTHELABO-A01200811957

PATIENT
  Sex: Male

DRUGS (2)
  1. PLAVIX [Suspect]
     Indication: ACUTE CORONARY SYNDROME
     Route: 048
  2. ENOXAPARIN SODIUM [Suspect]
     Indication: ACUTE CORONARY SYNDROME
     Route: 065

REACTIONS (3)
  - HAEMOGLOBIN DECREASED [None]
  - OVERDOSE [None]
  - SPLENIC RUPTURE [None]
